FAERS Safety Report 4330304-2 (Version None)
Quarter: 2004Q2

REPORT INFORMATION
  Report Type: 
  Country: None (occurrence: None)
  Receive Date: 20040402
  Receipt Date: 20040319
  Transmission Date: 20050107
  Serious: Yes (Other)
  Sender: FDA-Public Use
  Company Number: PHEH2004US03208

PATIENT
  Age: 56 Year
  Sex: Male

DRUGS (3)
  1. ZELNORM [Suspect]
     Indication: IRRITABLE BOWEL SYNDROME
     Dosage: 6 MG, BID
     Route: 048
     Dates: start: 20031001, end: 20040315
  2. ZETIA [Concomitant]
  3. SINGULAIR [Concomitant]
     Indication: HYPERSENSITIVITY
     Dates: start: 20031101

REACTIONS (5)
  - ARRHYTHMIA [None]
  - ASTHMA [None]
  - CARDIAC VALVE DISEASE [None]
  - EXTRASYSTOLES [None]
  - VENTRICULAR EXTRASYSTOLES [None]
